FAERS Safety Report 13312777 (Version 1)
Quarter: 2017Q1

REPORT INFORMATION
  Report Type: Spontaneous
  Country: US (occurrence: US)
  Receive Date: 20170309
  Receipt Date: 20170309
  Transmission Date: 20170428
  Serious: Yes (Other)
  Sender: FDA-Public Use
  Company Number: US-SA-2017SA037016

PATIENT
  Age: 64 Year
  Sex: Female

DRUGS (1)
  1. AUBAGIO [Suspect]
     Active Substance: TERIFLUNOMIDE
     Indication: MULTIPLE SCLEROSIS
     Route: 048
     Dates: start: 20140826

REACTIONS (5)
  - Hypothyroidism [Unknown]
  - Blood triglycerides increased [Unknown]
  - Osteoarthritis [Unknown]
  - Dementia [Unknown]
  - Hypertension [Unknown]

NARRATIVE: CASE EVENT DATE: 20170228
